FAERS Safety Report 8398389-4 (Version None)
Quarter: 2012Q2

REPORT INFORMATION
  Report Type: 
  Country: None (occurrence: None)
  Receive Date: 20120531
  Receipt Date: 20120518
  Transmission Date: 20120825
  Serious: No
  Sender: FDA-Public Use
  Company Number: US-ENDO PHARMACEUTICALS INC.-PERC20120098

PATIENT
  Sex: Female
  Weight: 88.53 kg

DRUGS (3)
  1. FLEXERIL [Concomitant]
     Indication: MUSCLE RELAXANT THERAPY
     Dosage: 10 MG
     Route: 048
  2. PERCOCET [Suspect]
     Indication: NECK PAIN
     Dosage: 600 MG
     Route: 048
     Dates: start: 20101101, end: 20110201
  3. VICODIN [Suspect]
     Indication: NECK PAIN
     Dosage: UNK
     Route: 048
     Dates: end: 20110201

REACTIONS (3)
  - CONDITION AGGRAVATED [None]
  - NECK PAIN [None]
  - DRUG INEFFECTIVE [None]
